FAERS Safety Report 8522837-X (Version None)
Quarter: 2012Q3

REPORT INFORMATION
  Report Type: 
  Country: None (occurrence: None)
  Receive Date: 20120720
  Receipt Date: 20120706
  Transmission Date: 20120928
  Serious: Yes (Hospitalization, Other)
  Sender: FDA-Public Use
  Company Number: IT-PAR PHARMACEUTICAL, INC-2012SCPR004497

PATIENT

DRUGS (10)
  1. PROPAFENONE HCL [Interacting]
     Indication: PRODUCT USED FOR UNKNOWN INDICATION
     Dosage: 150 MG, EVERY 12 HOURS
     Route: 048
  2. TORSEMIDE [Concomitant]
     Indication: PRODUCT USED FOR UNKNOWN INDICATION
     Dosage: 10 MG TWICE WEEKLY
     Route: 065
  3. VENLAFAXINE HYDROCHOLRIDE [Suspect]
     Indication: DEPRESSION
     Dosage: 75 MG, / DAY
     Route: 065
  4. VENLAFAXINE HYDROCHOLRIDE [Interacting]
     Dosage: 150 MG, / DAY
     Route: 065
  5. TICLOPIDINE HCL [Concomitant]
     Indication: PRODUCT USED FOR UNKNOWN INDICATION
     Dosage: 250 MG, / DAY
     Route: 065
  6. THEOPHYLLINE [Concomitant]
     Indication: PRODUCT USED FOR UNKNOWN INDICATION
     Dosage: 300 MG, / DAY
     Route: 065
  7. ACETAMINOPHEN [Concomitant]
     Indication: PRODUCT USED FOR UNKNOWN INDICATION
     Dosage: 500 MG, / DAY, AS NEEDED
     Route: 065
  8. RAMIPRIL [Concomitant]
     Indication: PRODUCT USED FOR UNKNOWN INDICATION
     Dosage: 5 MG, / DAY
     Route: 065
  9. TRIAZOLAM [Concomitant]
     Indication: PRODUCT USED FOR UNKNOWN INDICATION
     Dosage: 0.125 MG, AT BEDTIME, AS NEEDED
     Route: 065
  10. SERTRALINE HYDROCHLORIDE [Concomitant]
     Indication: PRODUCT USED FOR UNKNOWN INDICATION
     Dosage: 50 MG, / DAY
     Route: 065
     Dates: start: 20060215

REACTIONS (7)
  - DEPRESSION [None]
  - PERIPHERAL PULSE DECREASED [None]
  - PSYCHOMOTOR HYPERACTIVITY [None]
  - ABDOMINAL TENDERNESS [None]
  - DRUG INTERACTION [None]
  - HALLUCINATION, VISUAL [None]
  - AORTIC BRUIT [None]
